FAERS Safety Report 25163768 (Version 1)
Quarter: 2025Q2

REPORT INFORMATION
  Report Type: Spontaneous
  Country: US (occurrence: US)
  Receive Date: 20250405
  Receipt Date: 20250405
  Transmission Date: 20250716
  Serious: Yes (Other)
  Sender: AMNEAL
  Company Number: US-AMNEAL-2025-AMRX-01252

PATIENT
  Age: 32 Year
  Sex: Male

DRUGS (1)
  1. BACLOFEN [Suspect]
     Active Substance: BACLOFEN
     Indication: Product used for unknown indication
     Dosage: 66.60 MICROGRAM (500MCG/ML), QD
     Route: 037

REACTIONS (4)
  - Implant site warmth [Recovered/Resolved]
  - Implant site extravasation [Recovered/Resolved]
  - Implant site pain [Recovered/Resolved]
  - Device related infection [Recovered/Resolved]

NARRATIVE: CASE EVENT DATE: 20250307
